FAERS Safety Report 10265321 (Version 1)
Quarter: 2014Q2

REPORT INFORMATION
  Report Type: Spontaneous
  Country: IT (occurrence: IT)
  Receive Date: 20140627
  Receipt Date: 20140627
  Transmission Date: 20141212
  Serious: Yes (Hospitalization)
  Sender: FDA-Public Use
  Company Number: IT-TEVA-490663ISR

PATIENT
  Age: 35 Year
  Sex: Female

DRUGS (1)
  1. QUETIAPINA TEVA ITALIA 300 MG [Suspect]
     Indication: PERSONALITY DISORDER
     Dosage: 300 MILLIGRAM DAILY;
     Route: 048
     Dates: start: 20140505, end: 20140515

REACTIONS (4)
  - Hot flush [Not Recovered/Not Resolved]
  - Panic attack [Not Recovered/Not Resolved]
  - Psychomotor hyperactivity [Not Recovered/Not Resolved]
  - Aggression [Not Recovered/Not Resolved]
